FAERS Safety Report 10257579 (Version 1)
Quarter: 2014Q2

REPORT INFORMATION
  Report Type: Report from Study
  Country: US (occurrence: US)
  Receive Date: 20140625
  Receipt Date: 20140625
  Transmission Date: 20141212
  Serious: Yes (Other)
  Sender: FDA-Public Use
  Company Number: US-JNJFOC-20140610721

PATIENT
  Age: 59 Year
  Sex: Male

DRUGS (3)
  1. STELARA [Suspect]
     Indication: PSORIASIS
     Route: 058
     Dates: start: 201403, end: 201403
  2. CLOBEX [Concomitant]
     Indication: PSORIASIS
     Route: 061
  3. VANOS [Concomitant]
     Indication: PSORIASIS
     Route: 061

REACTIONS (3)
  - Anal abscess [Recovering/Resolving]
  - Fistula [Recovered/Resolved]
  - Psoriasis [Not Recovered/Not Resolved]
